FAERS Safety Report 5880966-3 (Version None)
Quarter: 2008Q3

REPORT INFORMATION
  Report Type: 
  Country: None (occurrence: None)
  Receive Date: 20080912
  Receipt Date: 20080614
  Transmission Date: 20090109
  Serious: No
  Sender: FDA-Public Use
  Company Number: US-ABBOTT-08P-163-0457295-00

PATIENT
  Sex: Female
  Weight: 113.63 kg

DRUGS (5)
  1. HUMIRA [Suspect]
     Indication: ANKYLOSING SPONDYLITIS
     Route: 058
     Dates: start: 20080613
  2. DIOVAN HCT [Concomitant]
     Indication: BLOOD PRESSURE
     Route: 048
  3. FELODIPINE [Concomitant]
     Indication: BLOOD PRESSURE
     Route: 048
  4. LANSOPRAZOLE [Concomitant]
     Indication: GASTROOESOPHAGEAL REFLUX DISEASE
     Route: 048
  5. AMITRIPTYLINE PAMOATE [Concomitant]
     Indication: FIBROMYALGIA
     Route: 048

REACTIONS (5)
  - HEADACHE [None]
  - HYPOAESTHESIA [None]
  - JOINT SWELLING [None]
  - MICTURITION URGENCY [None]
  - PARAESTHESIA [None]
